FAERS Safety Report 4622244-6 (Version None)
Quarter: 2005Q1

REPORT INFORMATION
  Report Type: 
  Country: None (occurrence: None)
  Receive Date: 20050323
  Receipt Date: 20050323
  Transmission Date: 20050727
  Serious: Yes (Other)
  Sender: FDA-Public Use
  Company Number: None

PATIENT
  Age: 42 Year
  Sex: Female
  Weight: 113.3993 kg

DRUGS (3)
  1. ULTRACET [Suspect]
     Indication: FIBROMYALGIA
     Dosage: 37.5   1-2 DAILY   ORAL
     Route: 048
     Dates: start: 20041109, end: 20041111
  2. ULTRACET [Suspect]
     Indication: MYOFASCIAL PAIN SYNDROME
     Dosage: 37.5   1-2 DAILY   ORAL
     Route: 048
     Dates: start: 20041109, end: 20041111
  3. ULTRACET [Suspect]
     Indication: PAIN
     Dosage: 37.5   1-2 DAILY   ORAL
     Route: 048
     Dates: start: 20041109, end: 20041111

REACTIONS (35)
  - ABDOMINAL DISTENSION [None]
  - ABDOMINAL PAIN [None]
  - AMNESIA [None]
  - ANXIETY [None]
  - ASTHENIA [None]
  - BLOOD PRESSURE FLUCTUATION [None]
  - CHILLS [None]
  - COLD SWEAT [None]
  - CONFUSIONAL STATE [None]
  - CONSTIPATION [None]
  - CRYING [None]
  - DEPERSONALISATION [None]
  - DEPRESSION [None]
  - DIZZINESS [None]
  - DRY MOUTH [None]
  - DYSPEPSIA [None]
  - EMOTIONAL DISORDER [None]
  - ERYTHEMA [None]
  - FATIGUE [None]
  - FEELING COLD [None]
  - FLATULENCE [None]
  - FREQUENT BOWEL MOVEMENTS [None]
  - HEADACHE [None]
  - HYPERHIDROSIS [None]
  - HYPERTENSION [None]
  - HYPOAESTHESIA [None]
  - INSOMNIA [None]
  - MOOD ALTERED [None]
  - MUSCLE CONTRACTIONS INVOLUNTARY [None]
  - NERVOUSNESS [None]
  - PARAESTHESIA [None]
  - STOMACH DISCOMFORT [None]
  - THINKING ABNORMAL [None]
  - TREMOR [None]
  - URINARY RETENTION [None]
